FAERS Safety Report 13367791 (Version 2)
Quarter: 2017Q1

REPORT INFORMATION
  Report Type: Spontaneous
  Country: FR (occurrence: FR)
  Receive Date: 20170324
  Receipt Date: 20170329
  Transmission Date: 20170429
  Serious: Yes (Hospitalization)
  Sender: FDA-Public Use
  Company Number: FR-TEVA-751165ROM

PATIENT
  Age: 84 Year
  Sex: Male

DRUGS (11)
  1. EFFEXOR [Suspect]
     Active Substance: VENLAFAXINE HYDROCHLORIDE
     Indication: DEPRESSION
     Dosage: 1 DOSAGE FORMS DAILY; FORM: PROLONGED-RELEASE CAPSULE, LONG-TERM TREATMENT
     Route: 048
     Dates: end: 201611
  2. IXPRIM [Suspect]
     Active Substance: ACETAMINOPHEN\TRAMADOL HYDROCHLORIDE
     Indication: PAIN
     Dosage: 3 DOSAGE FORMS DAILY; LONG-TERM TREATMENT
     Route: 048
     Dates: end: 201611
  3. KARDEGIC [Concomitant]
     Active Substance: ASPIRIN LYSINE
     Dosage: 1 DOSAGE FORMS DAILY; LONG-TERM TREATMENT
     Route: 048
     Dates: end: 20161027
  4. FLECAINE L.P. 50 MG [Concomitant]
     Dosage: 1 DOSAGE FORMS DAILY; FORM: PROLONGED-RELEASE CAPSULE, LONG-TERM TREATMENT
     Route: 048
     Dates: end: 20161028
  5. AZILECT [Suspect]
     Active Substance: RASAGILINE MESYLATE
     Indication: PARKINSON^S DISEASE
     Dosage: 1 DOSAGE FORMS DAILY;
     Route: 048
     Dates: start: 20121112, end: 20161105
  6. SERESTA 10 MG [Concomitant]
     Dosage: 2 DOSAGE FORMS DAILY; LONG-TERM TREATMENT
     Route: 048
  7. SINEMET [Suspect]
     Active Substance: CARBIDOPA\LEVODOPA
     Indication: PARKINSON^S DISEASE
     Dosage: 3 DOSAGE FORMS DAILY; LONG-TERM TREATMENT, 1 DOSAGE FORM = 100 MG LEVODOPA + 10 MG CARBIDOPA
     Route: 048
     Dates: end: 201611
  8. AVLOCARDYL [Concomitant]
     Active Substance: PROPRANOLOL HYDROCHLORIDE
     Dosage: LONG-TERM TREATMENT
     Route: 048
     Dates: end: 20161018
  9. PANTOPRAZOLE 40 MG [Concomitant]
     Active Substance: PANTOPRAZOLE SODIUM
     Dosage: 1 DOSAGE FORMS DAILY; LONG-TERM TREATMENT
     Route: 048
  10. PRADAXA [Concomitant]
     Active Substance: DABIGATRAN ETEXILATE MESYLATE
     Dosage: 2 DOSAGE FORMS DAILY; LONG-TERM TREATMENT
     Route: 048
  11. MELAXOSE [Concomitant]
     Active Substance: LACTULOSE\PARAFFIN
     Dosage: 3 DOSAGE FORMS DAILY; FORM: ORAL JELLY, LONG-TERM TREATMENT
     Route: 048
     Dates: end: 201611

REACTIONS (3)
  - Pneumonia aspiration [Recovered/Resolved]
  - Condition aggravated [Recovered/Resolved]
  - Dysphagia [Recovered/Resolved]

NARRATIVE: CASE EVENT DATE: 201610
